FAERS Safety Report 9901338 (Version 1)
Quarter: 2014Q1

REPORT INFORMATION
  Report Type: Spontaneous
  Country: US (occurrence: US)
  Receive Date: 20140217
  Receipt Date: 20140217
  Transmission Date: 20141002
  Serious: No
  Sender: FDA-Public Use
  Company Number: US-BAYER-2014-014793

PATIENT
  Sex: Male

DRUGS (2)
  1. STAXYN (FDT/ODT) [Suspect]
     Route: 048
  2. LEVITRA [Suspect]

REACTIONS (2)
  - Drug ineffective [None]
  - Drug ineffective [None]
